FAERS Safety Report 11808204 (Version 1)
Quarter: 2015Q4

REPORT INFORMATION
  Report Type: Spontaneous
  Country: US (occurrence: US)
  Receive Date: 20151207
  Receipt Date: 20151207
  Transmission Date: 20160305
  Serious: No
  Sender: FDA-Public Use
  Company Number: US-NOVELLABS-2015-US-000048

PATIENT
  Age: 81 Year
  Sex: Male
  Weight: 94.35 kg

DRUGS (3)
  1. TAKES A LOT OF MEDICATION [Concomitant]
  2. POLYETHYLENE GLYCOL 3350. [Suspect]
     Active Substance: POLYETHYLENE GLYCOL 3350
     Dosage: 17GM, ONCE A DAY,
     Route: 048
     Dates: start: 20150418, end: 20150425
  3. DIURETIC TWICE A DAY [Concomitant]

REACTIONS (1)
  - Weight increased [Recovering/Resolving]

NARRATIVE: CASE EVENT DATE: 20150419
